FAERS Safety Report 4703424-8 (Version None)
Quarter: 2005Q2

REPORT INFORMATION
  Report Type: 
  Country: None (occurrence: None)
  Receive Date: 20050629
  Receipt Date: 20050613
  Transmission Date: 20051028
  Serious: Yes (Other)
  Sender: FDA-Public Use
  Company Number: USA0506100357

PATIENT
  Age: 33 Year
  Sex: Male
  Weight: 100 kg

DRUGS (3)
  1. ZYPREXA [Suspect]
     Indication: BIPOLAR DISORDER
     Dosage: 10 MG/4 DAY
  2. XANAX [Concomitant]
  3. FLUOXETINE [Concomitant]

REACTIONS (5)
  - DIABETES MELLITUS [None]
  - FATIGUE [None]
  - INCREASED TENDENCY TO BRUISE [None]
  - SKIN DISORDER [None]
  - WEIGHT INCREASED [None]
